FAERS Safety Report 6092746-7 (Version None)
Quarter: 2009Q1

REPORT INFORMATION
  Report Type: 
  Country: None (occurrence: None)
  Receive Date: 20090225
  Receipt Date: 20081225
  Transmission Date: 20090719
  Serious: Yes (Other)
  Sender: FDA-Public Use
  Company Number: JP-JNJFOC-20080600085

PATIENT
  Sex: Male
  Weight: 60 kg

DRUGS (12)
  1. ITRIZOLE [Suspect]
     Indication: INFECTION PROPHYLAXIS
     Route: 048
  2. VELCADE [Suspect]
     Route: 042
  3. VELCADE [Suspect]
     Route: 042
  4. VELCADE [Suspect]
     Route: 042
  5. VELCADE [Suspect]
     Indication: MULTIPLE MYELOMA
     Route: 042
  6. DECADRON [Concomitant]
     Indication: MULTIPLE MYELOMA
     Route: 042
  7. LOXONIN [Concomitant]
     Indication: PROPHYLAXIS
     Route: 048
  8. MEYLON [Concomitant]
     Indication: PH URINE INCREASED
     Route: 042
  9. BACTRIM [Concomitant]
     Indication: ANTIFUNGAL PROPHYLAXIS
     Route: 048
  10. HUMALOG [Concomitant]
     Indication: DIABETES MELLITUS
     Route: 058
  11. MUCOSTA [Concomitant]
     Indication: PROPHYLAXIS
     Route: 048
  12. LASIX [Concomitant]
     Indication: POLYURIA
     Route: 042

REACTIONS (13)
  - DIARRHOEA [None]
  - FAECAL INCONTINENCE [None]
  - HEPATIC FUNCTION ABNORMAL [None]
  - ILEUS [None]
  - INJECTION SITE RASH [None]
  - JAUNDICE [None]
  - NEUROGENIC BLADDER [None]
  - NEUROPATHY PERIPHERAL [None]
  - PHLEBITIS [None]
  - PNEUMONIA [None]
  - PYELONEPHRITIS [None]
  - THROMBOCYTOPENIA [None]
  - WHITE BLOOD CELL COUNT DECREASED [None]
